FAERS Safety Report 4546471-1 (Version None)
Quarter: 2005Q1

REPORT INFORMATION
  Report Type: 
  Country: None (occurrence: None)
  Receive Date: 20050103
  Receipt Date: 20041215
  Transmission Date: 20050727
  Serious: Yes (Hospitalization)
  Sender: FDA-Public Use
  Company Number: JP_041205468

PATIENT
  Age: 62 Year
  Sex: Female

DRUGS (3)
  1. VANCOMYCIN [Suspect]
     Indication: PYREXIA
     Dates: start: 20040527, end: 20040607
  2. PAZUFLOXACIN [Concomitant]
  3. CEFPIROME [Concomitant]

REACTIONS (3)
  - EOSINOPHIL PERCENTAGE INCREASED [None]
  - PYREXIA [None]
  - WHITE BLOOD CELL COUNT DECREASED [None]
